FAERS Safety Report 6299476-7 (Version None)
Quarter: 2009Q3

REPORT INFORMATION
  Report Type: 
  Country: None (occurrence: None)
  Receive Date: 20090806
  Receipt Date: 20090731
  Transmission Date: 20100115
  Serious: Yes (Disabling)
  Sender: FDA-Public Use
  Company Number: B0583539A

PATIENT
  Sex: Male

DRUGS (1)
  1. PAXIL [Suspect]
     Indication: NEURALGIA
     Dosage: 10MG PER DAY
     Route: 048
     Dates: start: 20090301, end: 20090601

REACTIONS (1)
  - AGGRESSION [None]
